FAERS Safety Report 5301057-6 (Version None)
Quarter: 2007Q2

REPORT INFORMATION
  Report Type: 
  Country: None (occurrence: None)
  Receive Date: 20070411
  Receipt Date: 20070327
  Transmission Date: 20071010
  Serious: Yes (Other)
  Sender: FDA-Public Use
  Company Number: A-US2007-14937

PATIENT

DRUGS (1)
  1. VENTAVIS [Suspect]
     Indication: RAYNAUD'S PHENOMENON

REACTIONS (3)
  - DEAFNESS BILATERAL [None]
  - DEAFNESS NEUROSENSORY [None]
  - SUDDEN HEARING LOSS [None]
